FAERS Safety Report 20214972 (Version 2)
Quarter: 2022Q1

REPORT INFORMATION
  Report Type: Report from Study
  Country: BR (occurrence: BR)
  Receive Date: 20211222
  Receipt Date: 20220118
  Transmission Date: 20220423
  Serious: Yes (Other)
  Sender: FDA-Public Use
  Company Number: BR-JNJFOC-20211233855

PATIENT
  Sex: Female

DRUGS (4)
  1. INFLIXIMAB [Suspect]
     Active Substance: INFLIXIMAB
     Indication: Crohn^s disease
     Dosage: 6 VIALS EVERY 8 WEEKS
     Route: 042
     Dates: start: 20200601
  2. AZATHIOPRINE [Concomitant]
     Active Substance: AZATHIOPRINE
     Indication: Product used for unknown indication
     Dosage: 2 TABLETS AND A HALF
     Route: 065
  3. CALCIUM CARBONATE [Concomitant]
     Active Substance: CALCIUM CARBONATE
     Indication: Product used for unknown indication
     Route: 065
  4. DPREV [Concomitant]
     Indication: Product used for unknown indication
     Dosage: 2 A DAY
     Route: 065

REACTIONS (4)
  - Abscess [Unknown]
  - Heavy menstrual bleeding [Unknown]
  - Drug ineffective [Unknown]
  - Wound [Unknown]

NARRATIVE: CASE EVENT DATE: 20200101
